FAERS Safety Report 20590107 (Version 1)
Quarter: 2022Q1

REPORT INFORMATION
  Report Type: Spontaneous
  Country: US (occurrence: US)
  Receive Date: 20220314
  Receipt Date: 20220314
  Transmission Date: 20220423
  Serious: Yes (Hospitalization)
  Sender: FDA-Public Use
  Company Number: US-009507513-2203USA003782

PATIENT
  Sex: Male

DRUGS (3)
  1. JANUVIA [Suspect]
     Active Substance: SITAGLIPTIN PHOSPHATE
     Dosage: UNK
     Route: 048
     Dates: start: 202201
  2. INSULIN NOS [Suspect]
     Active Substance: INSULIN NOS
     Dosage: 56 UNITS PER DAY
     Dates: start: 202201
  3. INSULIN NOS [Suspect]
     Active Substance: INSULIN NOS
     Dosage: 10 UNITS PER DAY

REACTIONS (1)
  - Blood glucose fluctuation [Not Recovered/Not Resolved]

NARRATIVE: CASE EVENT DATE: 20220101
